FAERS Safety Report 4421627-7 (Version None)
Quarter: 2004Q3

REPORT INFORMATION
  Report Type: 
  Country: None (occurrence: None)
  Receive Date: 20040804
  Receipt Date: 20040720
  Transmission Date: 20050211
  Serious: Yes (Other)
  Sender: FDA-Public Use
  Company Number: USA-2004-0013433

PATIENT
  Age: 44 Year
  Sex: Female

DRUGS (10)
  1. OXYCONTIN [Suspect]
  2. XANAX [Concomitant]
  3. METHADONE HCL [Concomitant]
  4. PRILOSEC [Concomitant]
  5. DEPAKOTE [Concomitant]
  6. TRAZODONE HCL [Concomitant]
  7. ZOCOR [Concomitant]
  8. HUMIBID (GUAIFENESIN) [Concomitant]
  9. ZOLOFT [Concomitant]
  10. CELEXA [Concomitant]

REACTIONS (23)
  - ANXIETY [None]
  - BACK INJURY [None]
  - BRONCHITIS [None]
  - BURSITIS [None]
  - CONFUSIONAL STATE [None]
  - DEPRESSION [None]
  - DRUG ABUSER [None]
  - DRUG DEPENDENCE [None]
  - DRUG WITHDRAWAL SYNDROME [None]
  - GASTRITIS [None]
  - HEADACHE [None]
  - INSOMNIA [None]
  - IRRITABILITY [None]
  - MITRAL VALVE PROLAPSE [None]
  - MUSCLE STRAIN [None]
  - MUSCULOSKELETAL CHEST PAIN [None]
  - NERVOUSNESS [None]
  - PAIN [None]
  - PANIC DISORDER [None]
  - RECTAL HAEMORRHAGE [None]
  - SUICIDAL IDEATION [None]
  - TREMOR [None]
  - WEIGHT DECREASED [None]
